FAERS Safety Report 7647113-9 (Version None)
Quarter: 2011Q3

REPORT INFORMATION
  Report Type: 
  Country: None (occurrence: None)
  Receive Date: 20110801
  Receipt Date: 20110721
  Transmission Date: 20111222
  Serious: Yes (Other)
  Sender: FDA-Public Use
  Company Number: US-ROCHE-734010

PATIENT
  Sex: Male
  Weight: 95.3 kg

DRUGS (1)
  1. ACCUTANE [Suspect]
     Dosage: DOSE TAKEN BETWEEN THERAPY PERIOD: 40 MG, 60 MG AND 80 MG
     Route: 048
     Dates: start: 19990101, end: 20000101

REACTIONS (4)
  - GASTROINTESTINAL INJURY [None]
  - COLITIS ULCERATIVE [None]
  - BLOOD TRIGLYCERIDES INCREASED [None]
  - ANAL FISSURE [None]
